FAERS Safety Report 13932803 (Version 1)
Quarter: 2017Q3

REPORT INFORMATION
  Report Type: Report from Study
  Country: None (occurrence: BE)
  Receive Date: 20170904
  Receipt Date: 20170904
  Transmission Date: 20171127
  Serious: Yes (Hospitalization)
  Sender: FDA-Public Use
  Company Number: BE-ABBVIE-17K-013-2089015-00

PATIENT
  Age: 78 Year
  Sex: Female

DRUGS (3)
  1. DUODOPA [Suspect]
     Active Substance: CARBIDOPA\LEVODOPA
     Dosage: MD=3ML??CD=2ML/HR DURING 16HRS ??EDA=1.2ML
     Route: 050
     Dates: start: 20170622
  2. DUODOPA [Suspect]
     Active Substance: CARBIDOPA\LEVODOPA
     Indication: PARKINSON^S DISEASE
     Dosage: MD=2.5ML??CD=0.9ML/HR DURING 16HRS ??EDA=0.5ML
     Route: 050
     Dates: start: 20170612, end: 20170616
  3. DUODOPA [Suspect]
     Active Substance: CARBIDOPA\LEVODOPA
     Dosage: MD=2ML??CD=1.2ML/HR DURING 16HRS ??EDA=0.7ML
     Route: 050
     Dates: start: 20170616, end: 20170622

REACTIONS (6)
  - Stoma site discharge [Recovered/Resolved]
  - Stoma site hypergranulation [Recovering/Resolving]
  - Stoma site irritation [Recovered/Resolved]
  - Stoma site erythema [Recovered/Resolved]
  - Abdominal pain [Recovered/Resolved]
  - Gallbladder operation [Recovered/Resolved]

NARRATIVE: CASE EVENT DATE: 2017
